FAERS Safety Report 12538426 (Version 1)
Quarter: 2016Q3

REPORT INFORMATION
  Report Type: Spontaneous
  Country: US (occurrence: US)
  Receive Date: 20160707
  Receipt Date: 20160707
  Transmission Date: 20161109
  Serious: No
  Sender: FDA-Public Use
  Company Number: US-ASTRAZENECA-2016SE56212

PATIENT

DRUGS (2)
  1. KOMBIGLYZE XR [Suspect]
     Active Substance: METFORMIN HYDROCHLORIDE\SAXAGLIPTIN HYDROCHLORIDE
     Dosage: UNKNOWN
     Route: 048
     Dates: start: 2015
  2. TUJEO [Concomitant]
     Route: 065

REACTIONS (3)
  - Intentional product misuse [Unknown]
  - Off label use [Unknown]
  - Glycosylated haemoglobin increased [Unknown]
